FAERS Safety Report 6680210-3 (Version None)
Quarter: 2010Q2

REPORT INFORMATION
  Report Type: 
  Country: None (occurrence: None)
  Receive Date: 20100413
  Receipt Date: 20100324
  Transmission Date: 20101027
  Serious: No
  Sender: FDA-Public Use
  Company Number: JP-ROCHE-395205

PATIENT
  Sex: Female

DRUGS (1)
  1. TAMIFLU [Suspect]
     Dosage: DOSAGE REGIMEN REPORTED AS 150 MG.
     Route: 048

REACTIONS (1)
  - PREGNANCY [None]
